FAERS Safety Report 10797989 (Version 9)
Quarter: 2015Q2

REPORT INFORMATION
  Report Type: Spontaneous
  Country: US (occurrence: US)
  Receive Date: 20150216
  Receipt Date: 20150602
  Transmission Date: 20150821
  Serious: No
  Sender: FDA-Public Use
  Company Number: US-PFIZER INC-2015053905

PATIENT
  Age: 56 Year
  Sex: Female
  Weight: 46.26 kg

DRUGS (6)
  1. ELELYSO [Suspect]
     Active Substance: TALIGLUCERASE ALFA
     Dosage: 2800 UNITS, EVERY TWO WEEKS
     Route: 042
     Dates: start: 20150402
  2. ELELYSO [Suspect]
     Active Substance: TALIGLUCERASE ALFA
     Dosage: 2800 UNITS, EVERY TWO WEEKS
     Route: 042
     Dates: start: 20150416
  3. CLONAZEPAM. [Concomitant]
     Active Substance: CLONAZEPAM
     Indication: ANXIETY
     Dosage: 0.25 MG, DAILY (HS)
     Route: 048
     Dates: start: 201411
  4. CLONAZEPAM. [Concomitant]
     Active Substance: CLONAZEPAM
     Indication: INSOMNIA
  5. ELELYSO [Suspect]
     Active Substance: TALIGLUCERASE ALFA
     Indication: GAUCHER^S DISEASE TYPE I
     Dosage: 2800 UNITS, EVERY TWO WEEKS
     Route: 042
     Dates: start: 20141205
  6. ELELYSO [Suspect]
     Active Substance: TALIGLUCERASE ALFA
     Dosage: 2800 UNITS, EVERY TWO WEEKS

REACTIONS (8)
  - Chapped lips [Not Recovered/Not Resolved]
  - Therapeutic response unexpected [Unknown]
  - Chest pain [Recovered/Resolved]
  - Pain [Recovered/Resolved]
  - Chest discomfort [Recovered/Resolved]
  - Nausea [Unknown]
  - Gastric disorder [Not Recovered/Not Resolved]
  - Dizziness [Recovered/Resolved]

NARRATIVE: CASE EVENT DATE: 20150208
